FAERS Safety Report 4860048-X (Version None)
Quarter: 2005Q4

REPORT INFORMATION
  Report Type: 
  Country: None (occurrence: None)
  Receive Date: 20051219
  Receipt Date: 20051212
  Transmission Date: 20060501
  Serious: Yes (Hospitalization)
  Sender: FDA-Public Use
  Company Number: JP-JNJFOC-20050506606

PATIENT
  Age: 86 Year
  Sex: Male

DRUGS (7)
  1. OFLOXACIN [Suspect]
     Indication: BRONCHOPNEUMONIA
     Route: 048
     Dates: start: 20050224, end: 20050303
  2. DIAMICRON [Concomitant]
  3. QUINAPRIL HYDROCHLORIDE AND HYDROCHLOROTHIAZDE [Concomitant]
  4. QUINAPRIL HYDROCHLORIDE AND HYDROCHLOROTHIAZDE [Concomitant]
     Indication: ESSENTIAL HYPERTENSION
  5. PARIET [Concomitant]
  6. SERETIDE [Concomitant]
  7. SERETIDE [Concomitant]
     Indication: ASTHMA

REACTIONS (2)
  - RENAL FAILURE ACUTE [None]
  - RENAL TUBULAR NECROSIS [None]
